FAERS Safety Report 7764122-X (Version None)
Quarter: 2011Q3

REPORT INFORMATION
  Report Type: 
  Country: None (occurrence: None)
  Receive Date: 20110921
  Receipt Date: 20110909
  Transmission Date: 20111222
  Serious: Yes (Hospitalization)
  Sender: FDA-Public Use
  Company Number: US-ELI_LILLY_AND_COMPANY-US201005003148

PATIENT
  Age: 58 Year
  Sex: Female

DRUGS (4)
  1. FORTEO [Suspect]
     Indication: OSTEOPOROSIS
     Dosage: 20 UG, QD
     Dates: start: 20100401
  2. HYDROCODONE [Concomitant]
  3. TYLENOL                                 /SCH/ [Concomitant]
  4. ANTIHYPERTENSIVES [Concomitant]
     Dosage: UNK, QD

REACTIONS (7)
  - HEADACHE [None]
  - OESOPHAGEAL ULCER [None]
  - GENERAL PHYSICAL HEALTH DETERIORATION [None]
  - HYPERTENSION [None]
  - MUSCLE ATROPHY [None]
  - NEUROPATHY PERIPHERAL [None]
  - EYE DISORDER [None]
